FAERS Safety Report 8874002 (Version 2)
Quarter: 2014Q2

REPORT INFORMATION
  Report Type: Spontaneous
  Country: US (occurrence: US)
  Receive Date: 20121030
  Receipt Date: 20131018
  Transmission Date: 20141212
  Serious: Yes (Hospitalization)
  Sender: FDA-Public Use
  Company Number: US-PFIZER INC-2012267325

PATIENT
  Age: 56 Year
  Sex: Male
  Weight: 104.31 kg

DRUGS (2)
  1. DILANTIN [Suspect]
     Indication: CONVULSION
     Dosage: 300 MG, 2X/DAY
     Route: 048
  2. SERTRALINE [Concomitant]
     Dosage: 50 MG

REACTIONS (2)
  - Fall [Unknown]
  - Lower limb fracture [Unknown]
